FAERS Safety Report 20558084 (Version 1)
Quarter: 2022Q1

REPORT INFORMATION
  Report Type: Spontaneous
  Country: DE (occurrence: DE)
  Receive Date: 20220307
  Receipt Date: 20220307
  Transmission Date: 20220423
  Serious: Yes (Hospitalization, Other)
  Sender: FDA-Public Use
  Company Number: DE-CELLTRION INC.-2022DE002423

PATIENT

DRUGS (17)
  1. RITUXIMAB [Suspect]
     Active Substance: RITUXIMAB
     Indication: Prophylaxis against transplant rejection
     Dosage: UNK
     Route: 065
     Dates: start: 201910
  2. RITUXIMAB [Suspect]
     Active Substance: RITUXIMAB
     Dosage: UNK
     Dates: start: 202103
  3. RITUXIMAB [Suspect]
     Active Substance: RITUXIMAB
     Dosage: UNK
     Dates: start: 202008
  4. CYCLOSPORINE [Suspect]
     Active Substance: CYCLOSPORINE
     Indication: Prophylaxis against transplant rejection
     Dosage: UNK
     Route: 065
     Dates: start: 201812
  5. CYCLOSPORINE [Suspect]
     Active Substance: CYCLOSPORINE
     Dosage: REDUCED DOSE
     Dates: start: 201902
  6. TACROLIMUS [Suspect]
     Active Substance: TACROLIMUS
     Indication: Prophylaxis against transplant rejection
     Dosage: UNK (ADDITIONAL INFORMATION ON DRUG: BRAND NAME UNKNOWN. DRUG TO BE VERIFIED FOR BRAND)
     Dates: start: 201710
  7. TACROLIMUS [Suspect]
     Active Substance: TACROLIMUS
     Dosage: REDUCED DOSE (ADDITIONAL INFORMATION ON DRUG: BRAND NAME UNKNOWN. DRUG TO BE VERIFIED FOR BRAND)
     Route: 065
     Dates: start: 201801, end: 201812
  8. CYTOTEC [Suspect]
     Active Substance: MISOPROSTOL
     Indication: Product used for unknown indication
     Dosage: UNK
     Route: 042
     Dates: start: 201902
  9. BASILIXIMAB [Suspect]
     Active Substance: BASILIXIMAB
     Indication: Prophylaxis against transplant rejection
     Dosage: UNK
     Route: 065
     Dates: start: 2017
  10. MYCOPHENOLATE MOFETIL [Suspect]
     Active Substance: MYCOPHENOLATE MOFETIL
     Indication: Prophylaxis against transplant rejection
     Dosage: UNK
     Route: 065
     Dates: start: 2017, end: 201801
  11. EVEROLIMUS [Suspect]
     Active Substance: EVEROLIMUS
     Indication: Prophylaxis against transplant rejection
     Dosage: REDUCED DOSE
     Dates: start: 201803
  12. EVEROLIMUS [Suspect]
     Active Substance: EVEROLIMUS
     Dosage: UNK
     Dates: start: 201908
  13. EVEROLIMUS [Suspect]
     Active Substance: EVEROLIMUS
     Dosage: INCREASED DOSE
     Dates: start: 201902
  14. EVEROLIMUS [Suspect]
     Active Substance: EVEROLIMUS
     Dosage: REDUCED DOSE
     Route: 065
     Dates: start: 201801
  15. EVEROLIMUS [Suspect]
     Active Substance: EVEROLIMUS
     Dosage: REDUCED DOSE
     Dates: start: 201804
  16. PREDNISOLONE [Suspect]
     Active Substance: PREDNISOLONE
     Indication: Prophylaxis against transplant rejection
     Dosage: UNK
     Route: 065
     Dates: start: 2017
  17. PREDNISOLONE [Suspect]
     Active Substance: PREDNISOLONE
     Dosage: UNK
     Dates: start: 201908

REACTIONS (5)
  - Neutropenia [Unknown]
  - Epstein-Barr virus infection [Unknown]
  - BK virus infection [Unknown]
  - Product use issue [Unknown]
  - Off label use [Unknown]
